FAERS Safety Report 4632356-9 (Version None)
Quarter: 2005Q2

REPORT INFORMATION
  Report Type: 
  Country: None (occurrence: None)
  Receive Date: 20050411
  Receipt Date: 20050329
  Transmission Date: 20051028
  Serious: Yes (Death)
  Sender: FDA-Public Use
  Company Number: JP-NOVOPROD-243255

PATIENT
  Age: 45 Year
  Sex: Male
  Weight: 70 kg

DRUGS (8)
  1. NOVORAPID CHU FLEXPEN [Suspect]
     Indication: INSULIN-REQUIRING TYPE II DIABETES MELLITUS
     Dosage: 66 IU, UNK
     Route: 058
     Dates: end: 20050321
  2. NOVOLIN N [Suspect]
     Indication: INSULIN-REQUIRING TYPE II DIABETES MELLITUS
     Dosage: 48 IU, UNK
     Dates: end: 20050321
  3. RENIVACE [Concomitant]
  4. CARDENALIN [Concomitant]
  5. ADALAT [Concomitant]
  6. LENDORM [Concomitant]
  7. URSO 250 [Concomitant]
  8. ZYLORIC ^FAES^ [Concomitant]

REACTIONS (3)
  - CARDIO-RESPIRATORY ARREST [None]
  - HYPOGLYCAEMIA [None]
  - SUDDEN CARDIAC DEATH [None]
